FAERS Safety Report 6575349-7 (Version None)
Quarter: 2010Q1

REPORT INFORMATION
  Report Type: 
  Country: None (occurrence: None)
  Receive Date: 20100209
  Receipt Date: 20100128
  Transmission Date: 20100710
  Serious: Yes (Death)
  Sender: FDA-Public Use
  Company Number: IT-ROCHE-683604

PATIENT
  Sex: Female

DRUGS (6)
  1. MYCOPHENOLATE MOFETIL [Suspect]
     Indication: LIVER TRANSPLANT
     Dosage: DOSE, FREQUENCY UNSPECIFIED.
     Route: 048
     Dates: start: 20090619
  2. BELATACEPT [Suspect]
     Indication: LIVER TRANSPLANT
     Dosage: DOSE, FREQUENCY UNSPECIFIED.
     Route: 042
     Dates: start: 20090618, end: 20091006
  3. BLINDED BASILIXIMAB [Suspect]
     Indication: LIVER TRANSPLANT
     Route: 042
     Dates: start: 20090618, end: 20090622
  4. VALCYTE [Concomitant]
     Dates: start: 20090619
  5. BACTRIM [Concomitant]
     Dates: start: 20090619
  6. ANTRA [Concomitant]
     Dates: start: 20090619

REACTIONS (5)
  - GRAFT LOSS [None]
  - HEPATIC ARTERY THROMBOSIS [None]
  - LIVER ABSCESS [None]
  - MULTI-ORGAN FAILURE [None]
  - SEPSIS [None]
